FAERS Safety Report 4967741-9 (Version None)
Quarter: 2006Q2

REPORT INFORMATION
  Report Type: 
  Country: None (occurrence: None)
  Receive Date: 20060404
  Receipt Date: 20060324
  Transmission Date: 20061013
  Serious: Yes (Hospitalization)
  Sender: FDA-Public Use
  Company Number: 2006-140207-NL

PATIENT
  Age: 36 Year
  Sex: Male

DRUGS (1)
  1. MIRTAZAPINE [Suspect]
     Indication: DEPRESSION
     Dosage: 30 MG QD ORAL
     Route: 048
     Dates: start: 20050411, end: 20060126

REACTIONS (4)
  - MUSCULOSKELETAL STIFFNESS [None]
  - PENILE SWELLING [None]
  - PENIS DISORDER [None]
  - PRIAPISM [None]
